FAERS Safety Report 14927370 (Version 1)
Quarter: 2018Q2

REPORT INFORMATION
  Report Type: Spontaneous
  Country: US (occurrence: US)
  Receive Date: 20180523
  Receipt Date: 20180523
  Transmission Date: 20180711
  Serious: No
  Sender: FDA-Public Use
  Company Number: US-PFIZER INC-2018209284

PATIENT
  Age: 35 Year
  Sex: Female

DRUGS (2)
  1. METHOTREXATE SODIUM. [Suspect]
     Active Substance: METHOTREXATE SODIUM
     Dosage: UNK
     Dates: start: 201505
  2. METHOTREXATE SODIUM. [Suspect]
     Active Substance: METHOTREXATE SODIUM
     Indication: ARTHRALGIA
     Dosage: 0.8 ML, WEEKLY (0.8CC WEEK)
     Dates: start: 201106, end: 201305

REACTIONS (3)
  - Condition aggravated [Unknown]
  - Sinusitis [Unknown]
  - Pain in extremity [Unknown]
